FAERS Safety Report 4546686-2 (Version None)
Quarter: 2005Q1

REPORT INFORMATION
  Report Type: 
  Country: None (occurrence: None)
  Receive Date: 20050105
  Receipt Date: 20041208
  Transmission Date: 20050727
  Serious: Yes (Other)
  Sender: FDA-Public Use
  Company Number: CIO04025764

PATIENT
  Sex: Female

DRUGS (5)
  1. PEPTO-BISMOL, ORIGINAL FLAVOR (BISMUTH SUBSALICYLATE 262 MG, CALCIUM C [Suspect]
     Indication: DIARRHOEA
     Dosage: CAPLET, ORAL
     Route: 048
     Dates: start: 20040608
  2. ASPIRIN [Concomitant]
  3. PLAVIX [Concomitant]
  4. LOTREL (BENAZEPRIL HYDROCHLORIDE, AMLODIPINE) [Concomitant]
  5. DETRO-SLOW RELEASE (TOLTERODINE L-TARTRATE) [Concomitant]

REACTIONS (1)
  - DEAFNESS [None]
